FAERS Safety Report 9503636 (Version 1)
Quarter: 2013Q1

REPORT INFORMATION
  Report Type: Spontaneous
  Country: US (occurrence: None)
  Receive Date: 20130130
  Receipt Date: 20130130
  Transmission Date: 20140127
  Serious: Yes (Other)
  Sender: FDA-Public Use
  Company Number: US201211004174

PATIENT
  Age: 68 Year
  Sex: Female
  Weight: 63.9 kg

DRUGS (5)
  1. BYDUREON [Suspect]
     Indication: TYPE 2 DIABETES MELLITUS
     Dosage: (1/W)
     Route: 058
     Dates: start: 20121111
  2. BYETTA (EXENATIDE) PEN, DISPOSABLE [Suspect]
     Route: 058
     Dates: start: 2007
  3. METFORMIN (METFORMIN) [Concomitant]
  4. PRANDIN [Concomitant]
  5. CORTISONE (CORTISONE) [Concomitant]

REACTIONS (8)
  - Blood glucose decreased [None]
  - Malaise [None]
  - Blood glucose increased [None]
  - Tendon injury [None]
  - Urinary tract infection [None]
  - Weight increased [None]
  - Injection site discomfort [None]
  - Nausea [None]
